FAERS Safety Report 13647713 (Version 1)
Quarter: 2017Q2

REPORT INFORMATION
  Report Type: Report from Study
  Country: None (occurrence: RO)
  Receive Date: 20170613
  Receipt Date: 20170613
  Transmission Date: 20170830
  Serious: Yes (Hospitalization, Other)
  Sender: FDA-Public Use
  Company Number: RO-ABBVIE-17K-135-2003753-00

PATIENT
  Sex: Male

DRUGS (4)
  1. BILOMAG [Concomitant]
     Indication: MEMORY IMPAIRMENT
     Route: 048
  2. HUMIRA [Suspect]
     Active Substance: ADALIMUMAB
     Indication: ANKYLOSING SPONDYLITIS
     Route: 058
     Dates: start: 20101115, end: 20170515
  3. CLOTRIMAZOL [Concomitant]
     Active Substance: CLOTRIMAZOLE
     Indication: ONYCHOMYCOSIS
     Route: 061
  4. PROSTAFIX 24 [Concomitant]
     Indication: PROSTATIC DISORDER
     Route: 048

REACTIONS (3)
  - Uveitis [Not Recovered/Not Resolved]
  - Gallbladder operation [Recovered/Resolved]
  - Urethral stenosis [Not Recovered/Not Resolved]

NARRATIVE: CASE EVENT DATE: 2013
